FAERS Safety Report 10867740 (Version 1)
Quarter: 2015Q1

REPORT INFORMATION
  Report Type: Spontaneous
  Country: US (occurrence: US)
  Receive Date: 20150225
  Receipt Date: 20150225
  Transmission Date: 20150721
  Serious: Yes (Other)
  Sender: FDA-Public Use
  Company Number: US-BAYER-2015-025587

PATIENT
  Age: 79 Year
  Sex: Male

DRUGS (3)
  1. AVELOX [Suspect]
     Active Substance: MOXIFLOXACIN HYDROCHLORIDE
     Indication: SINUSITIS
     Dosage: UNK
     Dates: start: 20100419, end: 20100428
  2. AVELOX [Suspect]
     Active Substance: MOXIFLOXACIN HYDROCHLORIDE
     Indication: SINUSITIS
     Dosage: UNK
     Dates: start: 20100501, end: 20100509
  3. AVELOX [Suspect]
     Active Substance: MOXIFLOXACIN HYDROCHLORIDE
     Indication: SINUSITIS
     Dosage: UNK
     Dates: start: 20100419

REACTIONS (27)
  - Pigment dispersion syndrome [None]
  - Injury [None]
  - Iris hypopigmentation [None]
  - Pain [None]
  - Uveitis [None]
  - Fatigue [None]
  - Glaucoma [None]
  - Iris transillumination defect [None]
  - Vitritis [None]
  - Iridocyclitis [None]
  - Intraocular pressure test [None]
  - Iritis [None]
  - Anterior chamber inflammation [None]
  - Iris disorder [None]
  - Diplopia [None]
  - Eye inflammation [None]
  - Conjunctival deposit [None]
  - Visual impairment [None]
  - Vision blurred [None]
  - Photophobia [None]
  - Quality of life decreased [None]
  - Eye pain [None]
  - Emotional distress [None]
  - Anhedonia [None]
  - Eye swelling [None]
  - Mydriasis [None]
  - Holmes-Adie pupil [None]
